FAERS Safety Report 23563983 (Version 1)
Quarter: 2024Q1

REPORT INFORMATION
  Report Type: Spontaneous
  Country: FR (occurrence: FR)
  Receive Date: 20240226
  Receipt Date: 20240226
  Transmission Date: 20240410
  Serious: Yes (Hospitalization, Other)
  Sender: FDA-Public Use
  Company Number: FR-AFSSAPS-GR2024000155

PATIENT
  Age: 82 Year
  Sex: Female

DRUGS (3)
  1. TRAMADOL [Suspect]
     Active Substance: TRAMADOL\TRAMADOL HYDROCHLORIDE
     Indication: Sciatica
     Dosage: UNK,NP
     Route: 048
     Dates: start: 20231213, end: 20231216
  2. NEFOPAM [Suspect]
     Active Substance: NEFOPAM
     Indication: Sciatica
     Dosage: UNK,NP
     Route: 048
     Dates: start: 20231213, end: 20231216
  3. AMITRIPTYLINE HYDROCHLORIDE [Suspect]
     Active Substance: AMITRIPTYLINE HYDROCHLORIDE
     Indication: Sciatica
     Dosage: UNK,NP
     Route: 048
     Dates: start: 20231213, end: 20231216

REACTIONS (1)
  - Coma [Recovered/Resolved]

NARRATIVE: CASE EVENT DATE: 20231216
